FAERS Safety Report 22310284 (Version 2)
Quarter: 2023Q2

REPORT INFORMATION
  Report Type: Report from Study
  Country: KR (occurrence: KR)
  Receive Date: 20230511
  Receipt Date: 20230511
  Transmission Date: 20230721
  Serious: Yes (Death, Hospitalization)
  Sender: FDA-Public Use
  Company Number: KR-ABBVIE-4701411

PATIENT
  Age: 53 Year
  Sex: Female
  Weight: 54 kg

DRUGS (32)
  1. VENETOCLAX [Suspect]
     Active Substance: VENETOCLAX
     Indication: Acute myeloid leukaemia
     Dosage: EACH 28-DAY CYCLE
     Route: 048
     Dates: start: 20230109, end: 20230320
  2. AZACITIDINE [Suspect]
     Active Substance: AZACITIDINE
     Indication: Acute myeloid leukaemia
     Dosage: DAYS 1 TO 5 OF EACH 28-DAY CYCLE
     Route: 058
     Dates: start: 20230109, end: 20230310
  3. VACRAX [Concomitant]
     Indication: Antiviral prophylaxis
     Route: 048
     Dates: start: 20221231
  4. URSODIOL [Concomitant]
     Active Substance: URSODIOL
     Indication: Prophylaxis
     Route: 048
     Dates: start: 20221231
  5. K-CAB [Concomitant]
     Indication: Gastritis prophylaxis
     Route: 048
     Dates: start: 20221231
  6. ACETYLCYSTEINE [Concomitant]
     Active Substance: ACETYLCYSTEINE
     Indication: Fibrosis
     Dosage: TIME INTERVAL: 0.33333333 DAYS
     Route: 048
     Dates: start: 20221231
  7. PRANLUKAST [Concomitant]
     Active Substance: PRANLUKAST
     Indication: Fibrosis
     Route: 048
     Dates: start: 20221231
  8. RUXOLITINIB [Concomitant]
     Active Substance: RUXOLITINIB
     Indication: Graft versus host disease
     Route: 048
     Dates: start: 20221231
  9. TRAZODONE [Concomitant]
     Active Substance: TRAZODONE HYDROCHLORIDE
     Indication: Depression
     Route: 048
     Dates: start: 20221231
  10. SYMBICORT [Concomitant]
     Active Substance: BUDESONIDE\FORMOTEROL FUMARATE DIHYDRATE
     Indication: Bronchiolitis obliterans syndrome
     Dosage: 2 PUFF
     Route: 055
     Dates: start: 20221231
  11. SPIRIVA RESPIMAT [Concomitant]
     Active Substance: TIOTROPIUM BROMIDE
     Indication: Bronchiolitis obliterans syndrome
     Dosage: 2 PUFF
     Route: 055
     Dates: start: 20221231
  12. OXYCODONE HYDROCHLORIDE [Concomitant]
     Active Substance: OXYCODONE HYDROCHLORIDE
     Indication: Back pain
     Dosage: TIME INTERVAL: AS NECESSARY
     Route: 048
     Dates: start: 20221231
  13. CARBOMER [Concomitant]
     Active Substance: CARBOMER
     Indication: Graft versus host disease
     Dosage: TIME INTERVAL: AS NECESSARY: 1 EA
     Route: 047
     Dates: start: 20221231
  14. GATIFLOXACIN [Concomitant]
     Active Substance: GATIFLOXACIN
     Indication: Graft versus host disease
     Dosage: TIME INTERVAL: AS NECESSARY: 1 EA
     Route: 047
     Dates: start: 20221231
  15. ONSERAN [Concomitant]
     Indication: Prophylaxis of nausea and vomiting
     Dosage: TIME INTERVAL: AS NECESSARY
     Route: 048
     Dates: start: 20221231
  16. EZETIMIBE\ROSUVASTATIN [Concomitant]
     Active Substance: EZETIMIBE\ROSUVASTATIN
     Indication: Hyperlipidaemia
     Route: 048
     Dates: start: 20230105
  17. DICAMAX D [Concomitant]
     Indication: Osteoporosis
     Route: 048
     Dates: start: 20230105
  18. PREDNISOLONE [Concomitant]
     Active Substance: PREDNISOLONE
     Indication: Graft versus host disease
     Route: 048
     Dates: start: 20230117
  19. SALAGEN [Concomitant]
     Active Substance: PILOCARPINE HYDROCHLORIDE
     Indication: Graft versus host disease in eye
     Route: 048
     Dates: start: 20230117
  20. XEROVA [Concomitant]
     Indication: Prophylaxis
     Dosage: 2 EA
     Route: 061
     Dates: start: 20230117
  21. PROGRAF [Concomitant]
     Active Substance: TACROLIMUS
     Indication: Graft versus host disease
     Route: 048
     Dates: start: 20230131
  22. MEGESTROL ACETATE [Concomitant]
     Active Substance: MEGESTROL ACETATE
     Indication: Prophylaxis
     Route: 048
     Dates: start: 20230207
  23. MOSAPRIDE CITRATE [Concomitant]
     Active Substance: MOSAPRIDE CITRATE
     Indication: Antacid therapy
     Route: 048
     Dates: start: 20230207
  24. THEOBROMINE [Concomitant]
     Active Substance: THEOBROMINE
     Indication: Antitussive therapy
     Route: 048
     Dates: start: 20230208
  25. HYALURONATE SODIUM [Concomitant]
     Active Substance: HYALURONATE SODIUM
     Indication: Graft versus host disease in eye
     Dosage: TIME INTERVAL: AS NECESSARY: 1 EA
     Route: 047
     Dates: start: 20230209
  26. FULMELON [Concomitant]
     Indication: Graft versus host disease in eye
     Dosage: TIME INTERVAL: AS NECESSARY
     Route: 047
     Dates: start: 20230209
  27. ALLEGRA [Concomitant]
     Active Substance: FEXOFENADINE HYDROCHLORIDE
     Indication: Antitussive therapy
     Route: 048
     Dates: start: 20230217
  28. TOPISOL [Concomitant]
     Indication: Graft versus host disease in skin
     Dosage: 2 EA
     Route: 061
     Dates: start: 20230222
  29. RIVOTRIL [Concomitant]
     Active Substance: CLONAZEPAM
     Indication: Tremor
     Route: 048
     Dates: start: 20230306
  30. TEARIN FREE [Concomitant]
     Indication: Graft versus host disease in eye
     Dosage: TIME INTERVAL: AS NECESSARY: 1 EA
     Route: 047
     Dates: start: 20230307
  31. PREDBELL [Concomitant]
     Indication: Graft versus host disease in eye
     Dosage: 1 EA
     Route: 047
     Dates: start: 20230307
  32. MOXICLE [Concomitant]
     Indication: Infection prophylaxis
     Dosage: TIME INTERVAL: 0.33333333 DAYS
     Route: 048
     Dates: start: 20230314

REACTIONS (2)
  - Death [Fatal]
  - Pneumonia [Not Recovered/Not Resolved]

NARRATIVE: CASE EVENT DATE: 20230321
